FAERS Safety Report 14323774 (Version 3)
Quarter: 2018Q1

REPORT INFORMATION
  Report Type: Spontaneous
  Country: IT (occurrence: IT)
  Receive Date: 20171226
  Receipt Date: 20180118
  Transmission Date: 20180509
  Serious: Yes (Other)
  Sender: FDA-Public Use
  Company Number: IT-CONCORDIA PHARMACEUTICALS INC.-E2B_00009052

PATIENT
  Age: 83 Year
  Sex: Female

DRUGS (7)
  1. CARDICOR [Concomitant]
     Active Substance: BISOPROLOL
  2. GLUCOBAY [Concomitant]
     Active Substance: ACARBOSE
  3. COTAREG [Concomitant]
     Active Substance: HYDROCHLOROTHIAZIDE\VALSARTAN
  4. NORMIX [Concomitant]
     Active Substance: RIFAXIMIN
  5. LASIX [Concomitant]
     Active Substance: FUROSEMIDE
  6. LANSOPRAZOLO  SANDOZ  GMBH [Concomitant]
  7. LANOXIN [Suspect]
     Active Substance: DIGOXIN
     Indication: CARDIAC FAILURE
     Route: 048
     Dates: start: 20170101, end: 20170421

REACTIONS (3)
  - Oedema [Recovering/Resolving]
  - Bradycardia [Recovering/Resolving]
  - Abdominal distension [Recovering/Resolving]

NARRATIVE: CASE EVENT DATE: 20170421
